FAERS Safety Report 7673651 (Version 2)
Quarter: 2012Q4

REPORT INFORMATION
  Report Type: 
  Country: US (occurrence: US)
  Receive Date: 20101118
  Receipt Date: 20121029
  Transmission Date: 20130627
  Serious: Yes (Hospitalization, Other)
  Sender: FDA-Public Use
  Company Number: US-BAYER-201041613NA

PATIENT
  Age: 38 Year
  Sex: Female
  Weight: 86.17 kg

DRUGS (2)
  1. YAZ [Suspect]
     Indication: BIRTH CONTROL
     Route: 048
  2. YASMIN [Suspect]
     Indication: PRODUCT USED FOR UNKNOWN INDICATION
     Route: 048

REACTIONS (3)
  - Pulmonary embolism [None]
  - Gallbladder non-functioning [None]
  - Deep vein thrombosis [None]
